FAERS Safety Report 7270968-7 (Version None)
Quarter: 2011Q1

REPORT INFORMATION
  Report Type: 
  Country: None (occurrence: None)
  Receive Date: 20110202
  Receipt Date: 20110131
  Transmission Date: 20110831
  Serious: Yes (Hospitalization)
  Sender: FDA-Public Use
  Company Number: DE-ABBOTT-11P-062-0701692-00

PATIENT
  Sex: Female

DRUGS (3)
  1. CORTISON [Concomitant]
     Indication: PRODUCT USED FOR UNKNOWN INDICATION
  2. NOVALGIN [Concomitant]
     Indication: PRODUCT USED FOR UNKNOWN INDICATION
  3. HUMIRA [Suspect]
     Indication: RHEUMATOID ARTHRITIS
     Dosage: 40MG EVERY 10TH DAY,PEN
     Dates: start: 20090401

REACTIONS (2)
  - MUSCULOSKELETAL PAIN [None]
  - EYE DISORDER [None]
